FAERS Safety Report 4610791-2 (Version None)
Quarter: 2005Q2

REPORT INFORMATION
  Report Type: 
  Country: None (occurrence: None)
  Receive Date: 20050223
  Receipt Date: 20040105
  Transmission Date: 20051028
  Serious: Yes (Life-Threatening, Hospitalization, Other)
  Sender: FDA-Public Use
  Company Number: WAES0311USA00329

PATIENT
  Age: 80 Year
  Sex: Female
  Weight: 44.4525 kg

DRUGS (4)
  1. ZOCOR [Suspect]
     Indication: BLOOD CHOLESTEROL INCREASED
     Dosage: 40 MG/ DAILY/ PO
     Route: 048
     Dates: start: 20030904, end: 20031202
  2. ZOCOR [Suspect]
     Indication: HYPERLIPIDAEMIA
     Dosage: 40 MG/ DAILY/ PO
     Route: 048
     Dates: start: 20030904, end: 20031202
  3. NIASPAN [Suspect]
     Dosage: 500 MG
     Dates: start: 20030904, end: 20031202
  4. ASPIRIN [Concomitant]

REACTIONS (2)
  - RENAL FAILURE [None]
  - RHABDOMYOLYSIS [None]
